FAERS Safety Report 18808946 (Version 4)
Quarter: 2021Q3

REPORT INFORMATION
  Report Type: Report from Study
  Country: None (occurrence: BE)
  Receive Date: 20210129
  Receipt Date: 20210709
  Transmission Date: 20211014
  Serious: Yes (Other)
  Sender: FDA-Public Use
  Company Number: BE-ABBVIE-21K-013-3744877-00

PATIENT
  Age: 50 Year
  Sex: Female

DRUGS (1)
  1. RINVOQ [Suspect]
     Active Substance: UPADACITINIB
     Indication: RHEUMATOID ARTHRITIS
     Route: 048

REACTIONS (7)
  - Infusion [Unknown]
  - Limb discomfort [Not Recovered/Not Resolved]
  - Blood glucose abnormal [Unknown]
  - Weight increased [Not Recovered/Not Resolved]
  - Bleeding time prolonged [Unknown]
  - Blood cholesterol abnormal [Unknown]
  - Weight fluctuation [Unknown]
